FAERS Safety Report 4293432-6 (Version None)
Quarter: 2004Q1

REPORT INFORMATION
  Report Type: 
  Country: None (occurrence: None)
  Receive Date: 20040210
  Receipt Date: 20040210
  Transmission Date: 20041129
  Serious: Yes (Hospitalization)
  Sender: FDA-Public Use
  Company Number: None

PATIENT
  Sex: Male
  Weight: 109.7705 kg

DRUGS (3)
  1. TESTOSTERONE ENANTHATE [Suspect]
     Indication: HYPOGONADISM
     Dosage: 200 MG Q 1 WK IM
     Route: 030
     Dates: start: 20030912, end: 20031009
  2. ATENOLOL [Concomitant]
  3. ASPIRIN [Concomitant]

REACTIONS (4)
  - CARDIAC FAILURE CONGESTIVE [None]
  - FATIGUE [None]
  - ORTHOPNOEA [None]
  - WEIGHT INCREASED [None]
